FAERS Safety Report 9282176 (Version 1)
Quarter: 2013Q2

REPORT INFORMATION
  Report Type: Spontaneous
  Country: US (occurrence: US)
  Receive Date: 20130510
  Receipt Date: 20130510
  Transmission Date: 20140414
  Serious: No
  Sender: FDA-Public Use
  Company Number: US-PFIZER INC-2013145072

PATIENT
  Sex: Female
  Weight: 45.35 kg

DRUGS (3)
  1. NEURONTIN [Suspect]
     Indication: EPILEPSY
     Dosage: TWO CAPSULES OF 300 MG IN MORNING, ONE CAPSULE OF 300 MG IN AFTERNOON AND TWO CAPSULES OF 300,3X/DAY
     Route: 048
     Dates: start: 2007
  2. TRAMADOL HCL [Suspect]
     Dosage: UNK
  3. TOPAMAX [Concomitant]
     Indication: EPILEPSY
     Dosage: 200 MG, 3X/DAY
     Route: 048

REACTIONS (3)
  - Weight decreased [Unknown]
  - Back injury [Unknown]
  - Drug hypersensitivity [Unknown]
